FAERS Safety Report 6762136-X (Version None)
Quarter: 2010Q2

REPORT INFORMATION
  Report Type: 
  Country: None (occurrence: None)
  Receive Date: 20100609
  Receipt Date: 20100305
  Transmission Date: 20101027
  Serious: No
  Sender: FDA-Public Use
  Company Number: US-TYCO HEALTHCARE/MALLINCKRODT-T201000808

PATIENT
  Sex: Male
  Weight: 81.633 kg

DRUGS (1)
  1. ACETAMINOPHEN AND HYDROCODONE BITARTRATE [Suspect]
     Indication: PROCEDURAL PAIN
     Dosage: UNK
     Route: 048
     Dates: start: 20100304, end: 20100304

REACTIONS (6)
  - DIZZINESS [None]
  - HYPERHIDROSIS [None]
  - LETHARGY [None]
  - MUSCULAR WEAKNESS [None]
  - NAUSEA [None]
  - VISION BLURRED [None]
